FAERS Safety Report 8559813 (Version 3)
Quarter: 2013Q4

REPORT INFORMATION
  Report Type: Spontaneous
  Country: US (occurrence: US)
  Receive Date: 20120514
  Receipt Date: 20131205
  Transmission Date: 20140711
  Serious: Yes (Death, Hospitalization)
  Sender: FDA-Public Use
  Company Number: US-SANOFI-AVENTIS-2012SA031604

PATIENT
  Age: 55 Year
  Sex: Male

DRUGS (36)
  1. PLAVIX [Suspect]
     Indication: MYOCARDIAL INFARCTION
     Route: 048
     Dates: start: 20110515
  2. PLAVIX [Suspect]
     Indication: STENT PLACEMENT
     Route: 048
     Dates: start: 20110515
  3. INSULIN [Concomitant]
  4. ALL OTHER THERAPEUTIC PRODUCTS [Concomitant]
     Dosage: 1 STRIP, SQ, QID 450
  5. LEVOTHYROXINE [Concomitant]
     Route: 048
  6. FOLIC ACID [Concomitant]
  7. JANUVIA [Concomitant]
  8. VITAMIN D [Concomitant]
     Dosage: DOSE:1000 UNIT(S)
  9. ETODOLAC [Concomitant]
  10. ASPIRIN [Concomitant]
     Route: 048
  11. LORTAB [Concomitant]
     Route: 048
  12. FISH OIL [Concomitant]
     Route: 048
  13. GLUCOSAMINE [Concomitant]
     Route: 048
  14. VITAMIN C [Concomitant]
     Route: 048
  15. FAMOTIDINE [Concomitant]
     Route: 048
  16. ROBAXIN [Concomitant]
     Route: 048
  17. CALCIUM CITRATE [Concomitant]
  18. TRAMADOL [Concomitant]
     Route: 048
  19. COREG [Concomitant]
     Route: 048
  20. LASIX [Concomitant]
     Route: 048
  21. WELCHOL [Concomitant]
     Route: 048
  22. IMDUR [Concomitant]
     Route: 048
  23. HYDRALAZINE [Concomitant]
     Route: 048
  24. LIPITOR [Concomitant]
     Route: 048
  25. LANTUS [Concomitant]
     Route: 065
  26. OXYGEN [Concomitant]
  27. HUMALOG [Concomitant]
  28. ROCEPHIN [Concomitant]
  29. KEFLEX [Concomitant]
     Route: 048
  30. ARGININE [Concomitant]
     Route: 048
  31. PRINIVIL [Concomitant]
     Route: 048
  32. LOVAZA [Concomitant]
     Route: 048
  33. INVANZ [Concomitant]
     Route: 065
  34. CRESTOR [Concomitant]
     Route: 048
  35. LISINOPRIL [Concomitant]
     Route: 048
  36. TORSEMIDE [Concomitant]
     Route: 048

REACTIONS (14)
  - Therapeutic response increased [Unknown]
  - Mass [Unknown]
  - Wound complication [Unknown]
  - Cellulitis [Recovered/Resolved]
  - Excoriation [Recovered/Resolved]
  - Ulcer [Recovered/Resolved]
  - Necrosis [Recovered/Resolved]
  - Respiratory failure [Fatal]
  - Anaemia [Fatal]
  - Gastrointestinal haemorrhage [Fatal]
  - Red blood cell count decreased [Fatal]
  - Asthenia [Fatal]
  - Arthralgia [Unknown]
  - Decubitus ulcer [Unknown]
